FAERS Safety Report 9311356 (Version 2)
Quarter: 2013Q3

REPORT INFORMATION
  Report Type: Spontaneous
  Country: CH (occurrence: CH)
  Receive Date: 20130528
  Receipt Date: 20130904
  Transmission Date: 20140515
  Serious: Yes (Other)
  Sender: FDA-Public Use
  Company Number: CH-BRISTOL-MYERS SQUIBB COMPANY-18921478

PATIENT
  Age: 50 Year
  Sex: Female

DRUGS (11)
  1. LITALIR CAPS [Suspect]
     Indication: ACUTE MYELOID LEUKAEMIA
     Route: 048
     Dates: start: 20130403, end: 20130403
  2. TRETINOIN [Concomitant]
     Indication: ACUTE MYELOID LEUKAEMIA
     Dosage: 40 MG CAPS;1X12H
     Route: 048
     Dates: start: 20130321
  3. TRISENOX [Concomitant]
     Indication: ACUTE MYELOID LEUKAEMIA
     Dosage: 1X/D IV OVER 3 HOURS 21MAR2013
     Route: 041
     Dates: start: 20130331
  4. CEFEPIME FOR INJ [Concomitant]
     Indication: PYREXIA
     Route: 041
     Dates: start: 20130401
  5. DEXAMETHASONE [Concomitant]
     Route: 042
     Dates: start: 20130401
  6. HEPARIN [Concomitant]
     Route: 042
     Dates: start: 20130326
  7. MAGNESIUM SULFATE [Concomitant]
     Route: 042
     Dates: start: 20130331
  8. PASPERTIN [Concomitant]
     Route: 042
     Dates: start: 20130331
  9. NOXAFIL [Concomitant]
     Route: 048
     Dates: start: 20130321
  10. ZANTIC [Concomitant]
     Route: 048
     Dates: start: 20130321
  11. VALTREX [Concomitant]
     Route: 048
     Dates: start: 20130321

REACTIONS (4)
  - Type I hypersensitivity [Recovered/Resolved]
  - Rash [Recovered/Resolved]
  - Pruritus genital [Recovered/Resolved]
  - Off label use [Unknown]
